FAERS Safety Report 6444883-2 (Version None)
Quarter: 2009Q4

REPORT INFORMATION
  Report Type: 
  Country: None (occurrence: None)
  Receive Date: 20091118
  Receipt Date: 20091111
  Transmission Date: 20100525
  Serious: Yes (Hospitalization)
  Sender: FDA-Public Use
  Company Number: GXKR2009CH12380

PATIENT
  Age: 61 Year
  Sex: Female

DRUGS (7)
  1. PAMIDRONIC ACID (NGX) [Interacting]
     Indication: OSTEOPOROSIS
     Dosage: UNK
     Route: 065
  2. ESOMEPRAZOLE (NGX) [Interacting]
     Indication: GASTROOESOPHAGEAL REFLUX DISEASE
     Route: 065
  3. PREDNISONE (NGX) [Suspect]
     Indication: RENAL TRANSPLANT
     Route: 048
  4. ESTRADIOL (NGX) [Suspect]
     Indication: POSTMENOPAUSE
     Route: 062
  5. AZATHIOPRINE [Concomitant]
     Indication: RENAL TRANSPLANT
     Route: 065
  6. CYCLOSPORINE [Concomitant]
     Indication: RENAL TRANSPLANT
     Route: 065
  7. CALCIUM [Concomitant]
     Route: 048

REACTIONS (3)
  - DRUG INTERACTION [None]
  - FEMUR FRACTURE [None]
  - INTRAMEDULLARY ROD INSERTION [None]
